FAERS Safety Report 10145671 (Version 1)
Quarter: 2014Q2

REPORT INFORMATION
  Report Type: Report from Study
  Country: US (occurrence: US)
  Receive Date: 20140501
  Receipt Date: 20140501
  Transmission Date: 20141212
  Serious: No
  Sender: FDA-Public Use
  Company Number: US-ABBVIE-13P-163-1181772-00

PATIENT
  Sex: 0
  Weight: 81.72 kg

DRUGS (3)
  1. CREON [Suspect]
     Indication: PANCREATITIS NECROTISING
  2. LIPITOR [Suspect]
     Indication: PRODUCT USED FOR UNKNOWN INDICATION
  3. HUMALOG [Concomitant]
     Indication: DIABETES MELLITUS

REACTIONS (1)
  - Painful defaecation [Recovered/Resolved]
